FAERS Safety Report 10885576 (Version 1)
Quarter: 2015Q1

REPORT INFORMATION
  Report Type: Report from Study
  Country: US (occurrence: US)
  Receive Date: 20150304
  Receipt Date: 20150304
  Transmission Date: 20150721
  Serious: No
  Sender: FDA-Public Use
  Company Number: US-ABBVIE-14P-163-1206543-00

PATIENT
  Age: 40 Year
  Sex: Female
  Weight: 45.4 kg

DRUGS (1)
  1. LUPRON DEPOT [Suspect]
     Active Substance: LEUPROLIDE ACETATE
     Indication: ENDOMETRIOSIS
     Dates: start: 20131230

REACTIONS (4)
  - Mood swings [Unknown]
  - Palpitations [Unknown]
  - Night sweats [Unknown]
  - Pain [Unknown]

NARRATIVE: CASE EVENT DATE: 20140203
